FAERS Safety Report 24376430 (Version 1)
Quarter: 2024Q3

REPORT INFORMATION
  Report Type: Spontaneous
  Country: US (occurrence: US)
  Receive Date: 20240930
  Receipt Date: 20240930
  Transmission Date: 20241017
  Serious: Yes (Hospitalization, Other)
  Sender: GLAXOSMITHKLINE
  Company Number: US-GSK-US2024GSK118415

PATIENT

DRUGS (9)
  1. SULFAMETHOXAZOLE\TRIMETHOPRIM [Suspect]
     Active Substance: SULFAMETHOXAZOLE\TRIMETHOPRIM
     Indication: Pneumocystis jirovecii pneumonia
     Dosage: UNK
  2. ATOVAQUONE [Suspect]
     Active Substance: ATOVAQUONE
     Indication: Glomerulonephritis proliferative
     Dosage: UNK
  3. CEFEPIME [Suspect]
     Active Substance: CEFEPIME HYDROCHLORIDE
     Indication: Antibiotic therapy
     Dosage: UNK
  4. VANCOMYCIN [Suspect]
     Active Substance: VANCOMYCIN
     Indication: Antibiotic therapy
     Dosage: UNK
  5. PREDNISONE [Concomitant]
     Active Substance: PREDNISONE
     Indication: Glomerulonephritis proliferative
     Dosage: 40 MG, 1D
  6. FLUCYTOSINE [Concomitant]
     Active Substance: FLUCYTOSINE
     Indication: Cryptococcosis
     Dosage: UNK
  7. FLUCONAZOLE [Concomitant]
     Active Substance: FLUCONAZOLE
     Indication: Cryptococcosis
     Dosage: UNK
  8. OXYGEN [Concomitant]
     Active Substance: OXYGEN
     Indication: Hypoxia
     Dosage: 10 L
  9. MEROPENEM [Concomitant]
     Active Substance: MEROPENEM
     Indication: Pleural effusion
     Dosage: UNK

REACTIONS (2)
  - Renal failure [Recovering/Resolving]
  - Drug ineffective [Unknown]
